FAERS Safety Report 9146157 (Version 1)
Quarter: 2013Q1

REPORT INFORMATION
  Report Type: Spontaneous
  Country: US (occurrence: None)
  Receive Date: 20130204
  Receipt Date: 20130204
  Transmission Date: 20140127
  Serious: Yes (Death)
  Sender: FDA-Public Use
  Company Number: 2013010118

PATIENT
  Sex: 0

DRUGS (4)
  1. CARISOPRODOL (CARISOPRODOL) [Suspect]
  2. DULOXETINE [Suspect]
     Indication: COMPLETED SUICIDE
  3. OXYMORPHONE [Suspect]
     Indication: COMPLETED SUICIDE
  4. LITHIUM [Suspect]
     Indication: COMPLETED SUICIDE

REACTIONS (2)
  - Completed suicide [None]
  - Toxicity to various agents [None]
